FAERS Safety Report 18546740 (Version 1)
Quarter: 2020Q4

REPORT INFORMATION
  Report Type: Spontaneous
  Country: US (occurrence: US)
  Receive Date: 20201125
  Receipt Date: 20201125
  Transmission Date: 20210114
  Serious: Yes (Hospitalization)
  Sender: FDA-Public Use
  Company Number: US-MYLANLABS-2020M1097408

PATIENT
  Age: 43 Year
  Sex: Female

DRUGS (9)
  1. METRONIDAZOLE. [Suspect]
     Active Substance: METRONIDAZOLE
     Dosage: STEP 4; DOSE WAS PREPARED FROM AN IV SOLUTION ?..
     Route: 042
  2. METRONIDAZOLE. [Suspect]
     Active Substance: METRONIDAZOLE
     Dosage: STEP 5; DOSE WAS PREPARED FROM AN IV SOLUTION ?.
     Route: 042
  3. METRONIDAZOLE. [Suspect]
     Active Substance: METRONIDAZOLE
     Dosage: STEP 6; DOSE WAS PREPARED FROM AN IV SOLUTION?..
     Route: 042
  4. SODIUM CHLORIDE. [Concomitant]
     Active Substance: SODIUM CHLORIDE
     Indication: MEDICATION DILUTION
     Dosage: UNK
     Route: 065
  5. METRONIDAZOLE. [Suspect]
     Active Substance: METRONIDAZOLE
     Dosage: STEP 7; DOSE WAS PREPARED FROM AN IV SOLUTION ??
     Route: 042
  6. METRONIDAZOLE. [Suspect]
     Active Substance: METRONIDAZOLE
     Dosage: STEP 8; DOSE WAS PREPARED FROM AN IV SOLUTION?.
     Route: 042
  7. METRONIDAZOLE. [Suspect]
     Active Substance: METRONIDAZOLE
     Indication: IMMUNE TOLERANCE INDUCTION
     Dosage: STEP 3; DOSE WAS PREPARED FROM AN IV SOLUTION ?.
     Route: 042
  8. METRONIDAZOLE. [Suspect]
     Active Substance: METRONIDAZOLE
     Dosage: STEP 9; DOSE WAS PREPARED FROM AN IV SOLUTION?..
     Route: 042
  9. METRONIDAZOLE. [Suspect]
     Active Substance: METRONIDAZOLE
     Indication: TRICHOMONIASIS
     Dosage: 500 MILLIGRAM, BID
     Route: 048

REACTIONS (7)
  - Salivary hypersecretion [Recovered/Resolved]
  - Skin burning sensation [Recovered/Resolved]
  - Urticaria [Recovered/Resolved]
  - Pruritus [Recovered/Resolved]
  - Dyspnoea [Recovered/Resolved]
  - Vomiting [Recovered/Resolved]
  - Feeling hot [Recovered/Resolved]
